FAERS Safety Report 4683493-4 (Version None)
Quarter: 2005Q2

REPORT INFORMATION
  Report Type: 
  Country: None (occurrence: None)
  Receive Date: 20050603
  Receipt Date: 20050603
  Transmission Date: 20051028
  Serious: No
  Sender: FDA-Public Use
  Company Number: None

PATIENT
  Age: 77 Year
  Sex: Male
  Weight: 81.6475 kg

DRUGS (1)
  1. LIPITOR [Suspect]
     Indication: HYPERLIPIDAEMIA
     Dosage: 1 Q DAY TOTAL 5 PILLS

REACTIONS (4)
  - CONDITION AGGRAVATED [None]
  - PETECHIAE [None]
  - PSORIASIS [None]
  - STEVENS-JOHNSON SYNDROME [None]
